FAERS Safety Report 11845517 (Version 1)
Quarter: 2015Q4

REPORT INFORMATION
  Report Type: Spontaneous
  Country: US (occurrence: US)
  Receive Date: 20151217
  Receipt Date: 20151217
  Transmission Date: 20160305
  Serious: Yes (Hospitalization)
  Sender: FDA-Public Use
  Company Number: US-NOVOPROD-467631

PATIENT
  Age: 64 Year
  Sex: Female
  Weight: 90.7 kg

DRUGS (4)
  1. LEVEMIR [Suspect]
     Active Substance: INSULIN DETEMIR
     Indication: TYPE 2 DIABETES MELLITUS
     Dosage: 29 U, QD
     Route: 058
     Dates: start: 201501
  2. NOVOLOG [Suspect]
     Active Substance: INSULIN ASPART
     Dosage: 29 U, QD
     Dates: start: 201509, end: 201509
  3. NOVOLOG [Suspect]
     Active Substance: INSULIN ASPART
     Indication: TYPE 2 DIABETES MELLITUS
     Dosage: 4 UNITS TO 6 UNITS DAILY
     Route: 058
     Dates: start: 201501
  4. NOVOLOG [Suspect]
     Active Substance: INSULIN ASPART
     Dosage: 29 U, QD
     Dates: start: 201506, end: 201506

REACTIONS (4)
  - Wrong drug administered [Recovered/Resolved]
  - Accidental overdose [Recovered/Resolved]
  - Wrong drug administered [Recovered/Resolved]
  - Accidental overdose [Recovered/Resolved]

NARRATIVE: CASE EVENT DATE: 201506
